FAERS Safety Report 8903113 (Version 4)
Quarter: 2012Q4

REPORT INFORMATION
  Report Type: 
  Country: BE (occurrence: BE)
  Receive Date: 20121112
  Receipt Date: 20121217
  Transmission Date: 20130627
  Serious: Yes (Life-Threatening, Hospitalization, Other)
  Sender: FDA-Public Use
  Company Number: BE-ELI_LILLY_AND_COMPANY-BE201211001235

PATIENT
  Age: 54 Year
  Sex: Male
  Weight: 99 kg

DRUGS (6)
  1. ZYPREXA [Suspect]
     Indication: SCHIZOPHRENIA, CATATONIC TYPE
     Dosage: 10 mg, single
     Route: 030
     Dates: start: 20121029, end: 20121029
  2. SEROQUEL [Concomitant]
     Dosage: 400 mg, bid
  3. ANTIPSYCHOTICS [Concomitant]
  4. RISPERDAL [Concomitant]
     Dosage: 2 mg, qd
     Dates: start: 2009
  5. ALPRAZOLAM [Concomitant]
     Dosage: 0.5 mg, bid
     Dates: start: 2009
  6. BETAHISTINE [Concomitant]
     Dosage: UNK, tid
     Dates: start: 2009

REACTIONS (6)
  - Neuroleptic malignant syndrome [Not Recovered/Not Resolved]
  - Blood urine present [Not Recovered/Not Resolved]
  - Bacterial infection [Unknown]
  - Pyrexia [Not Recovered/Not Resolved]
  - Atelectasis [Unknown]
  - Urinary retention [Unknown]
